FAERS Safety Report 8951131 (Version 1)
Quarter: 2012Q4

REPORT INFORMATION
  Report Type: 
  Country: GB (occurrence: GB)
  Receive Date: 20121207
  Receipt Date: 20121207
  Transmission Date: 20130627
  Serious: Yes (Hospitalization)
  Sender: FDA-Public Use
  Company Number: GB-PFIZER INC-2012304308

PATIENT
  Age: 60 Year
  Sex: Female
  Weight: 62.2 kg

DRUGS (4)
  1. GENOTROPIN [Suspect]
     Dosage: 0.5 mg, 1x/day,7 injections/week
     Route: 058
     Dates: start: 20010515
  2. HYDROCORTISONE [Concomitant]
     Indication: ACTH DECREASED
     Dosage: UNK
     Dates: start: 198307
  3. THYROXINE [Concomitant]
     Indication: THYROID DISORDER
     Dosage: UNK
     Dates: start: 198307
  4. FLUDROCORTISONE [Concomitant]
     Indication: ACTH DECREASED
     Dosage: UNK
     Dates: start: 198407

REACTIONS (1)
  - Bunion [Unknown]
